FAERS Safety Report 11350567 (Version 2)
Quarter: 2016Q3

REPORT INFORMATION
  Report Type: Spontaneous
  Country: US (occurrence: US)
  Receive Date: 20150807
  Receipt Date: 20160801
  Transmission Date: 20161109
  Serious: Yes (Other)
  Sender: FDA-Public Use
  Company Number: US-BAYER-2015-389921

PATIENT
  Sex: Female
  Weight: 98.41 kg

DRUGS (19)
  1. DIOVAN [Concomitant]
     Active Substance: VALSARTAN
  2. AVELOX [Suspect]
     Active Substance: MOXIFLOXACIN HYDROCHLORIDE
     Indication: SINUSITIS
     Dosage: UNK
     Dates: start: 200804
  3. AVELOX [Suspect]
     Active Substance: MOXIFLOXACIN HYDROCHLORIDE
     Indication: BRONCHITIS
     Dosage: UNK
     Dates: start: 200801, end: 200912
  4. PRAVASTATIN. [Concomitant]
     Active Substance: PRAVASTATIN
  5. AVELOX [Suspect]
     Active Substance: MOXIFLOXACIN HYDROCHLORIDE
     Indication: OTITIS MEDIA
     Dosage: UNK
     Dates: start: 200803
  6. AVELOX [Suspect]
     Active Substance: MOXIFLOXACIN HYDROCHLORIDE
     Indication: BRONCHITIS
     Dosage: UNK
     Dates: start: 200910
  7. AVELOX [Suspect]
     Active Substance: MOXIFLOXACIN HYDROCHLORIDE
     Indication: BRONCHITIS
     Dosage: UNK
     Dates: start: 200912
  8. AVELOX [Suspect]
     Active Substance: MOXIFLOXACIN HYDROCHLORIDE
     Indication: BRONCHITIS
     Dosage: UNK
     Dates: start: 201001
  9. CIPRO [Concomitant]
     Active Substance: CIPROFLOXACIN HYDROCHLORIDE
  10. AVAPRO [Concomitant]
     Active Substance: IRBESARTAN
  11. FLECAINIDE [Concomitant]
     Active Substance: FLECAINIDE
  12. AVELOX [Suspect]
     Active Substance: MOXIFLOXACIN HYDROCHLORIDE
     Indication: EAR HAEMORRHAGE
     Dosage: UNK
     Dates: start: 200906
  13. PIRARUBICIN HYDROCHLORIDE [Suspect]
     Active Substance: PIRARUBICIN HYDROCHLORIDE
  14. AVELOX [Suspect]
     Active Substance: MOXIFLOXACIN HYDROCHLORIDE
     Indication: BRONCHITIS
     Dosage: UNK
     Dates: start: 200912
  15. MAXZIDE [Concomitant]
     Active Substance: HYDROCHLOROTHIAZIDE\TRIAMTERENE
  16. ZESTRIL [Concomitant]
     Active Substance: LISINOPRIL
  17. LEVAQUIN [Suspect]
     Active Substance: LEVOFLOXACIN
     Dosage: UNK
     Dates: start: 200201, end: 200604
  18. TRIAMTERENE. [Concomitant]
     Active Substance: TRIAMTERENE
  19. SIMVASTATIN. [Concomitant]
     Active Substance: SIMVASTATIN

REACTIONS (16)
  - Neuropathy peripheral [None]
  - Anxiety [None]
  - Anhedonia [None]
  - Muscular weakness [None]
  - Economic problem [None]
  - Bedridden [None]
  - Abasia [None]
  - Emotional distress [None]
  - Hypoaesthesia [None]
  - Pain in extremity [None]
  - Musculoskeletal stiffness [None]
  - Arthralgia [None]
  - Polyneuropathy [None]
  - Injury [None]
  - Pain [None]
  - Joint swelling [None]
